FAERS Safety Report 21686180 (Version 5)
Quarter: 2024Q4

REPORT INFORMATION
  Report Type: Report from Study
  Country: DE (occurrence: DE)
  Receive Date: 20221206
  Receipt Date: 20241227
  Transmission Date: 20250115
  Serious: No
  Sender: TAKEDA
  Company Number: DE-TAKEDA-2022TUS092106

PATIENT
  Age: 67 Year
  Sex: Female

DRUGS (14)
  1. TEDUGLUTIDE [Suspect]
     Active Substance: TEDUGLUTIDE
     Indication: Short-bowel syndrome
     Dosage: 2.9 MILLIGRAM, QD
     Dates: start: 20200730, end: 20200921
  2. TEDUGLUTIDE [Suspect]
     Active Substance: TEDUGLUTIDE
     Dosage: 2.8 MILLIGRAM, 4/WEEK
     Dates: start: 20210110
  3. TEDUGLUTIDE [Suspect]
     Active Substance: TEDUGLUTIDE
     Dosage: 2.8 MILLIGRAM, QD
     Dates: start: 20210509, end: 20210522
  4. TEDUGLUTIDE [Suspect]
     Active Substance: TEDUGLUTIDE
  5. IMODIUM [Concomitant]
     Active Substance: LOPERAMIDE HYDROCHLORIDE
     Indication: Short-bowel syndrome
     Dosage: 2 MILLIGRAM
  6. MAGNESIUM [Concomitant]
     Active Substance: MAGNESIUM
     Indication: Muscle spasms
     Dosage: 400 MILLIGRAM, QD
     Dates: start: 202110
  7. AMINOPHYLLINE\QUININE SULFATE [Concomitant]
     Active Substance: AMINOPHYLLINE\QUININE SULFATE
     Indication: Muscle spasms
     Dosage: 200 MILLIGRAM, QD
     Dates: start: 20211001
  8. MIRTAZAPINE [Concomitant]
     Active Substance: MIRTAZAPINE
     Indication: Sleep disorder
     Dosage: 15 MILLIGRAM, QD
     Dates: start: 202109, end: 202201
  9. MINERALS\VITAMINS [Concomitant]
     Active Substance: MINERALS\VITAMINS
     Indication: Vitamin supplementation
     Dosage: UNK, QD
     Dates: start: 202212
  10. CALCIUM [Concomitant]
     Active Substance: CALCIUM
     Indication: Urine calcium decreased
     Dosage: 500 MILLIGRAM, QD
     Dates: start: 202212
  11. CANDESARTAN CILEXETIL [Concomitant]
     Active Substance: CANDESARTAN CILEXETIL
     Indication: Hypertension
     Dosage: 32 MILLIGRAM, QD
     Dates: start: 202407
  12. CORTISONE [Concomitant]
     Active Substance: CORTISONE
     Indication: Arthralgia
     Dosage: 1 MILLIGRAM, QD
     Dates: start: 20240305, end: 20240315
  13. Vigantol [Concomitant]
     Indication: Osteopenia
     Dosage: 2 GTT DROPS, Q6MONTHS
     Dates: end: 202403
  14. Vigantol [Concomitant]
     Dosage: 3 GTT DROPS, QID
     Dates: start: 202403

REACTIONS (4)
  - Fatigue [Recovered/Resolved]
  - Hypervitaminosis A [Recovered/Resolved]
  - Hypervitaminosis [Not Recovered/Not Resolved]
  - Liver function test increased [Not Recovered/Not Resolved]

NARRATIVE: CASE EVENT DATE: 20230401
